FAERS Safety Report 19145318 (Version 1)
Quarter: 2021Q2

REPORT INFORMATION
  Report Type: Spontaneous
  Country: US (occurrence: US)
  Receive Date: 20210416
  Receipt Date: 20210416
  Transmission Date: 20210717
  Serious: Yes (Other)
  Sender: FDA-Public Use
  Company Number: None

PATIENT
  Age: 45 Year
  Sex: Male
  Weight: 71.1 kg

DRUGS (6)
  1. ARIELLA MOLE CORRECTOR SKIN TAG REMOVER [SALICYLIC ACID] [Suspect]
     Active Substance: SALICYLIC ACID
     Indication: MOLE EXCISION
     Dosage: ?          OTHER STRENGTH:NO STRENGTH LISTED;QUANTITY:1 APPLY W/ TOOTHPICK;OTHER FREQUENCY:OTHER;?
     Route: 061
     Dates: start: 20201124, end: 20210224
  2. METHIMAZOLE. [Concomitant]
     Active Substance: METHIMAZOLE
  3. TESTOSTERONE. [Concomitant]
     Active Substance: TESTOSTERONE
  4. IRBESARTAN. [Concomitant]
     Active Substance: IRBESARTAN
  5. ATROVASTATIN [Concomitant]
     Active Substance: ATORVASTATIN CALCIUM
  6. VITAMIN D [Concomitant]
     Active Substance: VITAMIN D NOS

REACTIONS (4)
  - Swelling [None]
  - Chemical burn [None]
  - Scar [None]
  - Scab [None]

NARRATIVE: CASE EVENT DATE: 20201124
